FAERS Safety Report 12954665 (Version 2)
Quarter: 2017Q1

REPORT INFORMATION
  Report Type: Spontaneous
  Country: CN (occurrence: CN)
  Receive Date: 20161118
  Receipt Date: 20170104
  Transmission Date: 20170428
  Serious: Yes (Hospitalization, Other)
  Sender: FDA-Public Use
  Company Number: CN-009507513-1609CHN007141

PATIENT
  Age: 22 Year
  Sex: Male

DRUGS (6)
  1. CYANOCOBALAMIN. [Concomitant]
     Active Substance: CYANOCOBALAMIN
     Dosage: 0.5 ML, QD
  2. DICLOFENAC [Concomitant]
     Active Substance: DICLOFENAC
     Indication: PERIOSTITIS
     Dosage: 0.2 G, QD
     Route: 048
     Dates: start: 20160622
  3. DIPROSPAN [Suspect]
     Active Substance: BETAMETHASONE DIPROPIONATE\BETAMETHASONE SODIUM PHOSPHATE
     Indication: PERIOSTITIS
     Dosage: 0.5 ML, ONCE
     Dates: start: 20160603, end: 20160603
  4. THIAMINE. [Concomitant]
     Active Substance: THIAMINE
     Dosage: UNK
  5. GU TAI ZHU SHE YE [Concomitant]
     Indication: PERIOSTITIS
     Dosage: UNK
     Dates: start: 20160622
  6. DIPROSPAN [Suspect]
     Active Substance: BETAMETHASONE DIPROPIONATE\BETAMETHASONE SODIUM PHOSPHATE
     Dosage: UNK, ONCE
     Route: 030
     Dates: start: 20160622, end: 20160622

REACTIONS (13)
  - Arthritis [Unknown]
  - Pyrexia [Unknown]
  - Tendonitis [Unknown]
  - Tongue coated [Unknown]
  - Pulse abnormal [Unknown]
  - Subcutaneous haematoma [Unknown]
  - Soft tissue infection [Recovering/Resolving]
  - Oropharyngeal pain [Unknown]
  - Arthritis [Unknown]
  - Injection site cellulitis [Unknown]
  - Productive cough [Unknown]
  - Malaise [Unknown]
  - Tongue discolouration [Unknown]

NARRATIVE: CASE EVENT DATE: 20160626
